FAERS Safety Report 8959954 (Version 2)
Quarter: 2013Q1

REPORT INFORMATION
  Report Type: Report from Study
  Country: DE (occurrence: DE)
  Receive Date: 20121212
  Receipt Date: 20130109
  Transmission Date: 20140127
  Serious: Yes (Other)
  Sender: FDA-Public Use
  Company Number: DE-ROCHE-1165998

PATIENT
  Age: 57 Year
  Sex: Female
  Weight: 82 kg

DRUGS (4)
  1. PEG-INTERFERON ALFA 2A [Suspect]
     Indication: HEPATITIS C
     Route: 065
     Dates: start: 20061116, end: 20061221
  2. RIBAVIRIN [Suspect]
     Indication: HEPATITIS C
     Route: 065
     Dates: start: 20061116, end: 20061221
  3. BISOPROLOL [Concomitant]
     Indication: CARDIAC FAILURE
     Dosage: 5/12.5
     Route: 065
     Dates: start: 20061211
  4. HCTZ [Concomitant]
     Indication: OEDEMA
     Route: 065
     Dates: start: 20090407

REACTIONS (5)
  - Hepatic failure [Not Recovered/Not Resolved]
  - Ascites [Unknown]
  - Hepatic cirrhosis [Unknown]
  - Splenomegaly [Unknown]
  - Drug effect decreased [Unknown]
